FAERS Safety Report 4756602-6 (Version None)
Quarter: 2005Q3

REPORT INFORMATION
  Report Type: 
  Country: None (occurrence: None)
  Receive Date: 20050825
  Receipt Date: 20050428
  Transmission Date: 20060218
  Serious: Yes (Other)
  Sender: FDA-Public Use
  Company Number: WAES 0504USA00864

PATIENT
  Age: 30 Year
  Sex: Male

DRUGS (1)
  1. VYTORIN [Suspect]
     Indication: BLOOD CHOLESTEROL ABNORMAL
     Dosage: 10-40 MG/DAILY/PO
     Route: 048
     Dates: start: 20041201, end: 20050405

REACTIONS (1)
  - RHABDOMYOLYSIS [None]
